FAERS Safety Report 25165359 (Version 1)
Quarter: 2025Q2

REPORT INFORMATION
  Report Type: Spontaneous
  Country: US (occurrence: US)
  Receive Date: 20250407
  Receipt Date: 20250407
  Transmission Date: 20250717
  Serious: No
  Sender: ROCHE
  Company Number: US-ROCHE-10000247009

PATIENT
  Sex: Male
  Weight: 91.4 kg

DRUGS (1)
  1. ACTEMRA [Suspect]
     Active Substance: TOCILIZUMAB
     Indication: Kidney transplant rejection
     Route: 042
     Dates: start: 202412

REACTIONS (2)
  - Off label use [Unknown]
  - Weight decreased [Unknown]
